FAERS Safety Report 4533453-9 (Version None)
Quarter: 2004Q4

REPORT INFORMATION
  Report Type: 
  Country: None (occurrence: None)
  Receive Date: 20041221
  Receipt Date: 20041216
  Transmission Date: 20050328
  Serious: Yes (Other)
  Sender: FDA-Public Use
  Company Number: PHEH2004US13395

PATIENT
  Age: 56 Year
  Sex: Female

DRUGS (1)
  1. LAMISIL [Suspect]
     Indication: NAIL TINEA
     Route: 048

REACTIONS (12)
  - AGEUSIA [None]
  - ALOPECIA [None]
  - CONTUSION [None]
  - DIARRHOEA [None]
  - FLATULENCE [None]
  - GLAUCOMA [None]
  - HEADACHE [None]
  - NAUSEA [None]
  - PHARYNGOLARYNGEAL PAIN [None]
  - STOMACH DISCOMFORT [None]
  - VISUAL DISTURBANCE [None]
  - WEIGHT DECREASED [None]
